FAERS Safety Report 16727255 (Version 1)
Quarter: 2019Q3

REPORT INFORMATION
  Report Type: Spontaneous
  Country: US (occurrence: US)
  Receive Date: 20190822
  Receipt Date: 20190822
  Transmission Date: 20191005
  Serious: Yes (Hospitalization)
  Sender: FDA-Public Use
  Company Number: US-SA-2019SA221933

PATIENT
  Age: 33 Year
  Sex: Female

DRUGS (10)
  1. PROPRANOLOL HYDROCHLORIDE. [Suspect]
     Active Substance: PROPRANOLOL HYDROCHLORIDE
     Dosage: 20 MG
  2. BENZTROPINE [BENZATROPINE] [Suspect]
     Active Substance: BENZTROPINE
     Indication: MUSCLE CONTRACTIONS INVOLUNTARY
  3. DIAZEPAM. [Suspect]
     Active Substance: DIAZEPAM
     Indication: MUSCLE CONTRACTIONS INVOLUNTARY
  4. LORAZEPAM. [Suspect]
     Active Substance: LORAZEPAM
     Indication: DYSTONIA
     Dosage: UNK
     Route: 042
  5. LORAZEPAM. [Suspect]
     Active Substance: LORAZEPAM
     Dosage: LORAZEPAM1 MG 3 TIMES PER DAY AS NEEDED
     Route: 048
  6. DIPHENHYDRAMINE. [Suspect]
     Active Substance: DIPHENHYDRAMINE
     Dosage: 50 MG, TID
  7. TRIHEXYPHENIDYL HYDROCHLORIDE. [Suspect]
     Active Substance: TRIHEXYPHENIDYL HYDROCHLORIDE
     Indication: DYSTONIA
  8. ESTROGEN [Concomitant]
     Active Substance: ESTROGENS
     Indication: ORAL CONTRACEPTION
  9. ESCITALOPRAM OXALATE. [Suspect]
     Active Substance: ESCITALOPRAM OXALATE
     Indication: GENERALISED ANXIETY DISORDER
     Dosage: 10 MG
  10. ESCITALOPRAM OXALATE. [Suspect]
     Active Substance: ESCITALOPRAM OXALATE
     Dosage: 20 UNK

REACTIONS (6)
  - Dystonia [Recovered/Resolved]
  - Conversion disorder [Recovered/Resolved]
  - Muscle contractions involuntary [Recovered/Resolved]
  - Tenderness [Recovered/Resolved]
  - Tardive dyskinesia [Recovered/Resolved]
  - Drug ineffective [Unknown]
